FAERS Safety Report 7298767-0 (Version None)
Quarter: 2011Q1

REPORT INFORMATION
  Report Type: 
  Country: None (occurrence: None)
  Receive Date: 20110217
  Receipt Date: 20110208
  Transmission Date: 20110831
  Serious: Yes (Hospitalization)
  Sender: FDA-Public Use
  Company Number: DE-ROCHE-750688

PATIENT
  Sex: Female
  Weight: 68 kg

DRUGS (8)
  1. LAPATINIB [Suspect]
     Indication: BREAST CANCER
     Dosage: TEMPORARILY INTERRUPTED
     Route: 048
     Dates: start: 20100326, end: 20100722
  2. LAPATINIB [Suspect]
     Dosage: DOSE REDUCED, PERMANENTLY DISCONTINUED
     Route: 048
     Dates: start: 20100803, end: 20100812
  3. TRASTUZUMAB [Suspect]
     Dosage: MAINTANANCE DOSE
     Route: 042
     Dates: start: 20101027
  4. EPIRUBICIN [Suspect]
     Indication: BREAST CANCER
     Route: 042
     Dates: start: 20100326, end: 20100510
  5. DOCETAXEL [Suspect]
     Indication: BREAST CANCER
     Route: 042
     Dates: start: 20100531, end: 20100803
  6. CYCLOPHOSPHAMIDE [Suspect]
     Indication: BREAST CANCER
     Route: 042
     Dates: start: 20100326, end: 20100510
  7. TRASTUZUMAB [Suspect]
     Indication: BREAST CANCER
     Dosage: LOADING DOSE
     Route: 042
     Dates: start: 20101006, end: 20101006
  8. ZOLEDRONIC ACID [Suspect]
     Route: 065
     Dates: start: 20101006

REACTIONS (2)
  - MITRAL VALVE INCOMPETENCE [None]
  - DYSPNOEA [None]
